FAERS Safety Report 5386892-0 (Version None)
Quarter: 2007Q3

REPORT INFORMATION
  Report Type: 
  Country: None (occurrence: None)
  Receive Date: 20070713
  Receipt Date: 20070629
  Transmission Date: 20080115
  Serious: Yes (Death)
  Sender: FDA-Public Use
  Company Number: NO-SHR-NO-2007-024834

PATIENT
  Age: 27 Year
  Sex: Female

DRUGS (1)
  1. YASMIN [Suspect]
     Dosage: UNKNOWN
     Route: 048

REACTIONS (1)
  - PULMONARY EMBOLISM [None]
